FAERS Safety Report 24190252 (Version 1)
Quarter: 2024Q3

REPORT INFORMATION
  Report Type: Other
  Country: CA (occurrence: CA)
  Receive Date: 20240808
  Receipt Date: 20240808
  Transmission Date: 20241017
  Serious: Yes (Other)
  Sender: TOLMAR
  Company Number: CA-TOLMAR, INC.-24CA051213

PATIENT
  Age: 51 Year
  Sex: Male

DRUGS (4)
  1. ELIGARD [Suspect]
     Active Substance: LEUPROLIDE ACETATE
     Indication: Prostate cancer
     Dosage: 22.5 MILLIGRAM, Q 3 MONTH
     Route: 058
     Dates: start: 20200228
  2. ELIGARD [Suspect]
     Active Substance: LEUPROLIDE ACETATE
     Dosage: 22.5 MILLIGRAM, Q 3 MONTH
     Route: 058
     Dates: start: 20240718
  3. ELIGARD [Suspect]
     Active Substance: LEUPROLIDE ACETATE
     Indication: Prostate cancer
     Dosage: UNK
  4. LUTETIUM LU-177 [Concomitant]
     Active Substance: LUTETIUM LU-177
     Indication: Product used for unknown indication
     Dosage: UNK
     Dates: start: 20240722

REACTIONS (2)
  - Metastases to bone [Unknown]
  - Prostatic specific antigen increased [Unknown]

NARRATIVE: CASE EVENT DATE: 20240201
